FAERS Safety Report 5776941-X (Version None)
Quarter: 2008Q2

REPORT INFORMATION
  Report Type: 
  Country: None (occurrence: None)
  Receive Date: 20080618
  Receipt Date: 20080617
  Transmission Date: 20081010
  Serious: Yes (Hospitalization)
  Sender: FDA-Public Use
  Company Number: B0525153A

PATIENT
  Age: 64 Year
  Sex: Female

DRUGS (2)
  1. ZANTAC [Suspect]
     Indication: DRUG USE FOR UNKNOWN INDICATION
     Dosage: 50MG PER DAY
     Route: 042
     Dates: start: 20080514, end: 20080514
  2. DEXAMETHASONE SODIUM PHOSPHATE [Concomitant]
     Dosage: 12MG PER DAY

REACTIONS (4)
  - ANAPHYLACTIC SHOCK [None]
  - CHEST DISCOMFORT [None]
  - HYPERHIDROSIS [None]
  - INCONTINENCE [None]
